FAERS Safety Report 5639755-7 (Version None)
Quarter: 2008Q1

REPORT INFORMATION
  Report Type: 
  Country: None (occurrence: None)
  Receive Date: 20080222
  Receipt Date: 20080129
  Transmission Date: 20080703
  Serious: Yes (Other)
  Sender: FDA-Public Use
  Company Number: CC08-104

PATIENT
  Sex: Male

DRUGS (1)
  1. PRIMATENE MIST [Suspect]
     Indication: ASTHMA
     Dosage: 2 ACUTATIONS AS NEEDED

REACTIONS (3)
  - INCOHERENT [None]
  - LOSS OF CONSCIOUSNESS [None]
  - VOMITING [None]
